FAERS Safety Report 5535751-9 (Version None)
Quarter: 2007Q4

REPORT INFORMATION
  Report Type: 
  Country: None (occurrence: None)
  Receive Date: 20071206
  Receipt Date: 20070330
  Transmission Date: 20080405
  Serious: Yes (Hospitalization, Other)
  Sender: FDA-Public Use
  Company Number: US-AMGEN-KDL145867

PATIENT
  Sex: Female

DRUGS (9)
  1. ENBREL [Suspect]
     Indication: PSORIASIS
     Dates: start: 20050501, end: 20050806
  2. ATENOLOL [Concomitant]
  3. CELEXA [Concomitant]
     Dates: end: 20050806
  4. DIOVAN [Concomitant]
  5. ACTOS [Concomitant]
     Dates: end: 20050806
  6. GLYBURIDE [Concomitant]
     Dates: end: 20050806
  7. ASPIRIN [Concomitant]
  8. ZOCOR [Concomitant]
  9. KLONOPIN [Concomitant]
     Dates: end: 20050806

REACTIONS (5)
  - ANGINA PECTORIS [None]
  - DEMYELINATION [None]
  - HEADACHE [None]
  - MYALGIA [None]
  - PSORIASIS [None]
